FAERS Safety Report 14734554 (Version 1)
Quarter: 2018Q2

REPORT INFORMATION
  Report Type: Spontaneous
  Country: US (occurrence: US)
  Receive Date: 20180403
  Receipt Date: 20180403
  Transmission Date: 20180711
  Serious: No
  Sender: FDA-Public Use
  Company Number: None

PATIENT
  Age: 55 Year
  Sex: Female
  Weight: 47.17 kg

DRUGS (4)
  1. BOOTSPLUS [Concomitant]
  2. OXYCODONE APAP-5-325 [Suspect]
     Active Substance: ACETAMINOPHEN\OXYCODONE HYDROCHLORIDE
     Indication: LIMB INJURY
     Dates: start: 20180305, end: 20180309
  3. ASHMA MACHINE [Concomitant]
  4. OXYCODONE APAP-5-325 [Suspect]
     Active Substance: ACETAMINOPHEN\OXYCODONE HYDROCHLORIDE
     Indication: BACK DISORDER
     Dates: start: 20180305, end: 20180309

REACTIONS (5)
  - Bedridden [None]
  - Abdominal pain upper [None]
  - Dyspnoea [None]
  - Lip swelling [None]
  - Chest pain [None]

NARRATIVE: CASE EVENT DATE: 20180308
